FAERS Safety Report 7544243-7 (Version None)
Quarter: 2011Q2

REPORT INFORMATION
  Report Type: 
  Country: None (occurrence: None)
  Receive Date: 20110613
  Receipt Date: 20070809
  Transmission Date: 20111010
  Serious: Yes (Hospitalization)
  Sender: FDA-Public Use
  Company Number: PHHO2007US13525

PATIENT
  Sex: Female
  Weight: 82 kg

DRUGS (8)
  1. CALCIUM CARBONATE [Concomitant]
  2. ZOMETA [Suspect]
     Indication: METASTASES TO BONE
     Dosage: 4 MG, EVERY THREE MONTH
     Route: 042
     Dates: start: 20050412
  3. ACIPHEX [Concomitant]
  4. PAROXETINE HYDROCHLORIDE [Concomitant]
  5. DETROL [Concomitant]
  6. ARIMIDEX [Concomitant]
  7. VITAMIN D [Concomitant]
     Indication: METASTASES TO BONE
  8. TRIAMTERENE [Concomitant]

REACTIONS (6)
  - DYSPNOEA [None]
  - VIRAL INFECTION [None]
  - INFLAMMATION [None]
  - FATIGUE [None]
  - EAR PAIN [None]
  - CHEST PAIN [None]
